FAERS Safety Report 5473232-1 (Version None)
Quarter: 2007Q4

REPORT INFORMATION
  Report Type: 
  Country: None (occurrence: None)
  Receive Date: 20071001
  Receipt Date: 20070920
  Transmission Date: 20080405
  Serious: Yes (Other)
  Sender: FDA-Public Use
  Company Number: SE-ROCHE-519751

PATIENT
  Age: 54 Year
  Sex: Female

DRUGS (3)
  1. PEGASYS [Suspect]
     Indication: HEPATITIS
     Route: 065
     Dates: start: 20070101, end: 20070701
  2. RIBAVIRIN [Suspect]
     Indication: HEPATITIS
     Dosage: FORM: REPORTED AS FILM COATED TABLET.
     Route: 065
     Dates: start: 20070101, end: 20070701
  3. COZAAR [Concomitant]
     Indication: HYPERTENSION

REACTIONS (1)
  - CATARACT [None]
